FAERS Safety Report 15530088 (Version 2)
Quarter: 2018Q4

REPORT INFORMATION
  Report Type: Spontaneous
  Country: JP (occurrence: JP)
  Receive Date: 20181018
  Receipt Date: 20181018
  Transmission Date: 20190205
  Serious: Yes (Hospitalization)
  Sender: FDA-Public Use
  Company Number: JP-PFIZER INC-2018419015

PATIENT
  Age: 7 Decade

DRUGS (2)
  1. NATRIX [Concomitant]
     Active Substance: INDAPAMIDE
     Dosage: UNK
  2. EFFEXOR [Suspect]
     Active Substance: VENLAFAXINE HYDROCHLORIDE
     Dosage: UNK
     Route: 048

REACTIONS (2)
  - Hyponatraemia [Recovered/Resolved]
  - Hypoaesthesia [Recovered/Resolved]
